FAERS Safety Report 23932208 (Version 2)
Quarter: 2024Q3

REPORT INFORMATION
  Report Type: Spontaneous
  Country: SA (occurrence: SA)
  Receive Date: 20240603
  Receipt Date: 20240704
  Transmission Date: 20241017
  Serious: Yes (Life-Threatening, Hospitalization)
  Sender: CHIESI
  Company Number: SA-CHIESI-2024CHF03065

PATIENT
  Sex: Male

DRUGS (3)
  1. FERRIPROX [Suspect]
     Active Substance: DEFERIPRONE
     Indication: Iron overload
     Dosage: 75 MILLIGRAM/KILOGRAM, TID
     Route: 048
     Dates: start: 20191030
  2. FERRIPROX [Suspect]
     Active Substance: DEFERIPRONE
     Indication: Thalassaemia beta
  3. HYDROXYUREA [Concomitant]
     Active Substance: HYDROXYUREA
     Indication: Product used for unknown indication
     Dosage: UNK

REACTIONS (3)
  - Febrile neutropenia [Recovered/Resolved]
  - Agranulocytosis [Recovered/Resolved]
  - Treatment noncompliance [Recovered/Resolved]

NARRATIVE: CASE EVENT DATE: 20200101
